FAERS Safety Report 10700080 (Version 1)
Quarter: 2015Q1

REPORT INFORMATION
  Report Type: Spontaneous
  Country: US (occurrence: US)
  Receive Date: 20150109
  Receipt Date: 20150109
  Transmission Date: 20150721
  Serious: No
  Sender: FDA-Public Use
  Company Number: US-009507513-1501USA002038

PATIENT
  Sex: Female

DRUGS (1)
  1. VYTORIN [Suspect]
     Active Substance: EZETIMIBE\SIMVASTATIN
     Dosage: 1 TABLET/ ONCE DAILY
     Route: 048
     Dates: end: 20150105

REACTIONS (2)
  - Dizziness [Not Recovered/Not Resolved]
  - Blood pressure fluctuation [Recovering/Resolving]
